FAERS Safety Report 6191176-7 (Version None)
Quarter: 2009Q2

REPORT INFORMATION
  Report Type: 
  Country: None (occurrence: None)
  Receive Date: 20090513
  Receipt Date: 20090513
  Transmission Date: 20091009
  Serious: Yes (Hospitalization)
  Sender: FDA-Public Use
  Company Number: None

PATIENT
  Age: 57 Year
  Sex: Male

DRUGS (4)
  1. METOLAZONE [Suspect]
     Indication: HYPERTENSION
     Dosage: 2.5 MG TID PO
     Route: 048
     Dates: start: 20090325, end: 20090403
  2. METOLAZONE [Suspect]
     Indication: OEDEMA
     Dosage: 2.5 MG TID PO
     Route: 048
     Dates: start: 20090325, end: 20090403
  3. BUMETANIDE [Suspect]
     Indication: HYPERTENSION
     Dosage: 2 MG TID PO
     Route: 048
     Dates: start: 20090325, end: 20090403
  4. BUMETANIDE [Suspect]
     Indication: OEDEMA
     Dosage: 2 MG TID PO
     Route: 048
     Dates: start: 20090325, end: 20090403

REACTIONS (4)
  - BRADYCARDIA [None]
  - DEHYDRATION [None]
  - INCORRECT DOSE ADMINISTERED [None]
  - RENAL FAILURE ACUTE [None]
